FAERS Safety Report 15264841 (Version 2)
Quarter: 2018Q3

REPORT INFORMATION
  Report Type: Spontaneous
  Country: JP (occurrence: JP)
  Receive Date: 20180810
  Receipt Date: 20180817
  Transmission Date: 20181010
  Serious: Yes (Hospitalization, Other)
  Sender: FDA-Public Use
  Company Number: JP-OTSUKA-2018_027903

PATIENT
  Sex: Female

DRUGS (3)
  1. DIART [Concomitant]
     Active Substance: AZOSEMIDE
     Indication: PRODUCT USED FOR UNKNOWN INDICATION
     Dosage: UNK
     Route: 065
  2. SAMSCA [Suspect]
     Active Substance: TOLVAPTAN
     Indication: CARDIAC FAILURE
     Dosage: 15 MG, BID (4 TABLETS TWICE A DAY)
     Route: 048
  3. SAMSCA [Suspect]
     Active Substance: TOLVAPTAN
     Dosage: 15 MG, QD
     Route: 065

REACTIONS (2)
  - Inappropriate schedule of drug administration [Unknown]
  - Poor peripheral circulation [Unknown]
